FAERS Safety Report 7740192-X (Version None)
Quarter: 2011Q3

REPORT INFORMATION
  Report Type: 
  Country: None (occurrence: None)
  Receive Date: 20110909
  Receipt Date: 20110907
  Transmission Date: 20111222
  Serious: Yes (Hospitalization, Other)
  Sender: FDA-Public Use
  Company Number: JP-PFIZER INC-2011201477

PATIENT

DRUGS (6)
  1. VOLTAREN [Suspect]
     Dosage: UNK
  2. CLARITHROMYCIN [Suspect]
     Dosage: UNK
  3. ISONIAZID [Suspect]
  4. CELECOXIB [Suspect]
     Dosage: UNK
  5. ENBREL [Suspect]
     Indication: RHEUMATOID ARTHRITIS
     Dosage: 50 MG, WEEKLY
     Route: 058
     Dates: start: 20110623, end: 20110812
  6. PREDNISOLONE [Suspect]
     Dosage: UNK

REACTIONS (2)
  - INTERSTITIAL LUNG DISEASE [None]
  - STEVENS-JOHNSON SYNDROME [None]
